FAERS Safety Report 9923902 (Version 1)
Quarter: 2014Q1

REPORT INFORMATION
  Report Type: Spontaneous
  Country: US (occurrence: US)
  Receive Date: 20140225
  Receipt Date: 20140225
  Transmission Date: 20141002
  Serious: No
  Sender: FDA-Public Use
  Company Number: US-AMGEN-USASP2014007456

PATIENT
  Age: 38 Year
  Sex: Male
  Weight: 88.44 kg

DRUGS (5)
  1. ENBREL [Suspect]
     Indication: PSORIASIS
     Dosage: 50 MG/ML, TWICE WEEKLY
     Route: 065
  2. KOMBIGLYZE [Concomitant]
     Dosage: 2.5-1000 UNK
  3. LISINOPRIL                         /00894002/ [Concomitant]
     Dosage: 5 MG, UNK
  4. CRESTOR [Concomitant]
     Dosage: 20 MG, UNK
  5. ASPIRIN [Concomitant]
     Dosage: 81 MG, UNK

REACTIONS (1)
  - Drug ineffective [Unknown]
